FAERS Safety Report 9331299 (Version 1)
Quarter: 2013Q2

REPORT INFORMATION
  Report Type: Spontaneous
  Country: DE (occurrence: DE)
  Receive Date: 20130605
  Receipt Date: 20130605
  Transmission Date: 20140414
  Serious: Yes (Death, Life-Threatening)
  Sender: FDA-Public Use
  Company Number: DE-PFIZER INC-2013165739

PATIENT
  Age: 56 Year
  Sex: Female
  Weight: 57 kg

DRUGS (5)
  1. AROMASIN [Suspect]
     Indication: BREAST CANCER
     Dosage: 25 MG, DAILY
     Route: 048
     Dates: start: 201207, end: 201209
  2. AFINITOR [Suspect]
     Indication: BREAST CANCER
     Dosage: 10 MG, DAILY
     Route: 048
     Dates: start: 201207, end: 201209
  3. DEXAMETHASONE [Suspect]
     Indication: BREAST CANCER
     Dosage: 4 MG, DAILY
     Route: 048
     Dates: start: 201207, end: 201209
  4. FENTANYL [Concomitant]
     Dosage: UNK
     Dates: start: 201204, end: 201210
  5. CALCITONIN [Concomitant]
     Dosage: UNK
     Dates: start: 201204, end: 201210

REACTIONS (3)
  - Disease progression [Fatal]
  - Breast cancer [Fatal]
  - Pneumocystis jirovecii pneumonia [Fatal]
